FAERS Safety Report 10948448 (Version 1)
Quarter: 2015Q1

REPORT INFORMATION
  Report Type: Spontaneous
  Country: US (occurrence: US)
  Receive Date: 20150324
  Receipt Date: 20150324
  Transmission Date: 20150721
  Serious: No
  Sender: FDA-Public Use
  Company Number: US-JNJFOC-20150310882

PATIENT
  Sex: Male
  Weight: 71.22 kg

DRUGS (27)
  1. DURAGESIC [Suspect]
     Active Substance: FENTANYL
     Indication: OEDEMA PERIPHERAL
     Route: 062
     Dates: start: 2014, end: 2014
  2. GENERIC FENTANYL [Suspect]
     Active Substance: FENTANYL
     Indication: TRIGEMINAL NEURALGIA
     Route: 062
     Dates: start: 201502, end: 2015
  3. MORPHINE [Concomitant]
     Active Substance: MORPHINE
     Indication: BREAKTHROUGH PAIN
     Route: 065
     Dates: start: 2011
  4. DURAGESIC [Suspect]
     Active Substance: FENTANYL
     Indication: BLISTER
     Route: 062
     Dates: start: 20150311
  5. GENERIC FENTANYL [Suspect]
     Active Substance: FENTANYL
     Indication: INTERVERTEBRAL DISC INJURY
     Route: 062
     Dates: start: 201502, end: 2015
  6. GENERIC FENTANYL [Suspect]
     Active Substance: FENTANYL
     Indication: PAIN
     Route: 062
     Dates: start: 201502, end: 2015
  7. DURAGESIC [Suspect]
     Active Substance: FENTANYL
     Indication: NEUROPATHY PERIPHERAL
     Route: 062
     Dates: start: 2014, end: 2014
  8. DURAGESIC [Suspect]
     Active Substance: FENTANYL
     Indication: COMPLEX REGIONAL PAIN SYNDROME
     Route: 062
     Dates: start: 20150311
  9. GENERIC FENTANYL [Suspect]
     Active Substance: FENTANYL
     Indication: OEDEMA PERIPHERAL
     Route: 062
     Dates: start: 201502, end: 2015
  10. GENERIC FENTANYL [Suspect]
     Active Substance: FENTANYL
     Indication: COMPLEX REGIONAL PAIN SYNDROME
     Route: 062
     Dates: start: 201502, end: 2015
  11. DURAGESIC [Suspect]
     Active Substance: FENTANYL
     Indication: INTERVERTEBRAL DISC INJURY
     Route: 062
     Dates: start: 2014, end: 2014
  12. DURAGESIC [Suspect]
     Active Substance: FENTANYL
     Indication: SPINAL DISORDER
     Route: 062
     Dates: start: 2014, end: 2014
  13. DURAGESIC [Suspect]
     Active Substance: FENTANYL
     Indication: PAIN
     Route: 062
     Dates: start: 20150311
  14. GENERIC FENTANYL [Suspect]
     Active Substance: FENTANYL
     Indication: BLISTER
     Route: 062
     Dates: start: 201502, end: 2015
  15. GENERIC FENTANYL [Suspect]
     Active Substance: FENTANYL
     Indication: NEUROPATHY PERIPHERAL
     Route: 062
     Dates: start: 201502, end: 2015
  16. ZOFRAN [Concomitant]
     Active Substance: ONDANSETRON HYDROCHLORIDE
     Indication: NAUSEA
     Route: 065
  17. DURAGESIC [Suspect]
     Active Substance: FENTANYL
     Indication: OEDEMA PERIPHERAL
     Route: 062
     Dates: start: 20150311
  18. DURAGESIC [Suspect]
     Active Substance: FENTANYL
     Indication: NEUROPATHY PERIPHERAL
     Route: 062
     Dates: start: 20150311
  19. DURAGESIC [Suspect]
     Active Substance: FENTANYL
     Indication: TRIGEMINAL NEURALGIA
     Route: 062
     Dates: start: 20150311
  20. DURAGESIC [Suspect]
     Active Substance: FENTANYL
     Indication: TRIGEMINAL NEURALGIA
     Route: 062
     Dates: start: 2014, end: 2014
  21. DURAGESIC [Suspect]
     Active Substance: FENTANYL
     Indication: BLISTER
     Route: 062
     Dates: start: 2014, end: 2014
  22. DURAGESIC [Suspect]
     Active Substance: FENTANYL
     Indication: COMPLEX REGIONAL PAIN SYNDROME
     Route: 062
     Dates: start: 2014, end: 2014
  23. GENERIC FENTANYL [Suspect]
     Active Substance: FENTANYL
     Indication: SPINAL DISORDER
     Route: 062
     Dates: start: 201502, end: 2015
  24. LIDOCAINE. [Concomitant]
     Active Substance: LIDOCAINE
     Indication: PAIN
     Route: 061
  25. DURAGESIC [Suspect]
     Active Substance: FENTANYL
     Indication: INTERVERTEBRAL DISC INJURY
     Route: 062
     Dates: start: 20150311
  26. DURAGESIC [Suspect]
     Active Substance: FENTANYL
     Indication: SPINAL DISORDER
     Route: 062
     Dates: start: 20150311
  27. DURAGESIC [Suspect]
     Active Substance: FENTANYL
     Indication: PAIN
     Route: 062
     Dates: start: 2014, end: 2014

REACTIONS (8)
  - Drug dose omission [Recovered/Resolved]
  - Product quality issue [Recovered/Resolved]
  - Wrong technique in drug usage process [Recovered/Resolved]
  - Drug tolerance [Recovered/Resolved]
  - Hyperhidrosis [Unknown]
  - Application site burn [Unknown]
  - Drug hypersensitivity [Recovered/Resolved]
  - Application site ulcer [Unknown]

NARRATIVE: CASE EVENT DATE: 2014
